FAERS Safety Report 8927940 (Version 1)
Quarter: 2012Q4

REPORT INFORMATION
  Report Type: Spontaneous
  Country: US (occurrence: None)
  Receive Date: 20121126
  Receipt Date: 20121126
  Transmission Date: 20130627
  Serious: Yes (Other)
  Sender: FDA-Public Use
  Company Number: None

PATIENT
  Age: 48 Year
  Sex: Male
  Weight: 72.58 kg

DRUGS (1)
  1. CIPROFLOXACIN [Suspect]
     Indication: PROSTATITIS
     Dosage: 42 pills twice a day po
     Route: 048
     Dates: start: 20120327, end: 20120417

REACTIONS (6)
  - Brain injury [None]
  - Insomnia [None]
  - Fatigue [None]
  - Memory impairment [None]
  - Vertigo [None]
  - Headache [None]
